FAERS Safety Report 18340667 (Version 1)
Quarter: 2020Q4

REPORT INFORMATION
  Report Type: Spontaneous
  Country: DE (occurrence: DE)
  Receive Date: 20201002
  Receipt Date: 20201002
  Transmission Date: 20210113
  Serious: Yes (Other)
  Sender: FDA-Public Use
  Company Number: DE-AUROBINDO-AUR-APL-2020-049889

PATIENT
  Age: 54 Year
  Sex: Female
  Weight: 63 kg

DRUGS (3)
  1. VENLAFAXINE [Suspect]
     Active Substance: VENLAFAXINE HYDROCHLORIDE
     Indication: FATIGUE
     Dosage: UNK,FROM 37.5MG TO MAX. 225MG
     Route: 048
     Dates: start: 20200123, end: 20200826
  2. VENLAFAXINE [Suspect]
     Active Substance: VENLAFAXINE HYDROCHLORIDE
     Indication: ANXIETY DISORDER
  3. VENLAFAXINE [Suspect]
     Active Substance: VENLAFAXINE HYDROCHLORIDE
     Indication: DEPRESSION

REACTIONS (18)
  - Loss of libido [Recovered/Resolved]
  - Menorrhagia [Not Recovered/Not Resolved]
  - Illusion [Unknown]
  - Somnolence [Recovered/Resolved]
  - Nightmare [Recovered/Resolved]
  - Menstrual disorder [Not Recovered/Not Resolved]
  - Decreased appetite [Unknown]
  - Arrhythmia [Not Recovered/Not Resolved]
  - Pruritus [Not Recovered/Not Resolved]
  - Amenorrhoea [Not Recovered/Not Resolved]
  - Electrocardiogram QT prolonged [Not Recovered/Not Resolved]
  - Nausea [Recovered/Resolved]
  - Abnormal faeces [Recovered/Resolved]
  - Hyperhidrosis [Unknown]
  - Feeling cold [Unknown]
  - Anorgasmia [Recovered/Resolved]
  - Blood cholesterol increased [Unknown]
  - Head discomfort [Not Recovered/Not Resolved]

NARRATIVE: CASE EVENT DATE: 20200123
